FAERS Safety Report 10171022 (Version 2)
Quarter: 2014Q2

REPORT INFORMATION
  Report Type: Spontaneous
  Country: GB (occurrence: GB)
  Receive Date: 20140514
  Receipt Date: 20140612
  Transmission Date: 20141212
  Serious: Yes (Other)
  Sender: FDA-Public Use
  Company Number: GB-AMGEN-GBRSP2014033955

PATIENT
  Age: 81 Year
  Sex: Female
  Weight: 59.4 kg

DRUGS (1)
  1. PROLIA [Suspect]
     Indication: OSTEOPENIA
     Dosage: 60 MG, Q6MO
     Route: 058
     Dates: start: 20130417

REACTIONS (2)
  - Cellulitis [Unknown]
  - Laceration [Recovered/Resolved]
